FAERS Safety Report 5635237-7 (Version None)
Quarter: 2008Q1

REPORT INFORMATION
  Report Type: 
  Country: None (occurrence: None)
  Receive Date: 20080222
  Receipt Date: 20080221
  Transmission Date: 20080703
  Serious: Yes (Life-Threatening, Hospitalization)
  Sender: FDA-Public Use
  Company Number: AU-BOEHRINGER INGELHEIM GMBH, GERMANY-2008-BP-01603AU

PATIENT
  Sex: Male

DRUGS (5)
  1. MOBIC [Suspect]
     Indication: EPICONDYLITIS
     Route: 048
     Dates: start: 20071127
  2. TENORMIN [Concomitant]
     Route: 048
  3. XALATAN [Concomitant]
     Route: 031
  4. VITAMINS [Concomitant]
     Indication: PROPHYLAXIS
  5. ASPIRIN [Concomitant]

REACTIONS (1)
  - RASH PUSTULAR [None]
